FAERS Safety Report 6926757-3 (Version None)
Quarter: 2010Q3

REPORT INFORMATION
  Report Type: 
  Country: None (occurrence: None)
  Receive Date: 20100816
  Receipt Date: 20100617
  Transmission Date: 20110219
  Serious: No
  Sender: FDA-Public Use
  Company Number: US-ABBOTT-10P-163-0652030-00

PATIENT
  Sex: Male
  Weight: 88.076 kg

DRUGS (8)
  1. SIMCOR [Suspect]
     Indication: PRODUCT USED FOR UNKNOWN INDICATION
     Dosage: 1 - 500/20MG TAB DAILY AT BEDTIME
     Dates: start: 20081201
  2. SIMCOR [Suspect]
     Dosage: 1 - 500/20MG TAB DAILY AT BEDTIME
     Dates: start: 20090101
  3. SIMCOR [Suspect]
     Dosage: 500/20MG AT BEDTIME
  4. METFORMIN [Concomitant]
     Indication: PRODUCT USED FOR UNKNOWN INDICATION
  5. ASPIRIN [Concomitant]
     Indication: PRODUCT USED FOR UNKNOWN INDICATION
  6. BENAZEP/HCTZ [Concomitant]
     Indication: PRODUCT USED FOR UNKNOWN INDICATION
  7. LOTENSIN [Concomitant]
     Indication: PRODUCT USED FOR UNKNOWN INDICATION
  8. GLIMEPIRIDE [Concomitant]
     Indication: PRODUCT USED FOR UNKNOWN INDICATION

REACTIONS (1)
  - FLUSHING [None]
